FAERS Safety Report 7679148-4 (Version None)
Quarter: 2011Q3

REPORT INFORMATION
  Report Type: 
  Country: None (occurrence: None)
  Receive Date: 20110812
  Receipt Date: 20110729
  Transmission Date: 20111222
  Serious: Yes (Hospitalization, Other)
  Sender: FDA-Public Use
  Company Number: US-ELI_LILLY_AND_COMPANY-US201107003004

PATIENT
  Sex: Female

DRUGS (14)
  1. FORTEO [Suspect]
     Indication: OSTEOPOROSIS
     Dosage: 20 UG, QD
     Dates: start: 20090812, end: 20110301
  2. OMEPRAZOLE [Concomitant]
     Dosage: 20 MG, BID
  3. ZOLOFT [Concomitant]
     Dosage: 50 MG, UNK
  4. CLONAZEPAM [Concomitant]
  5. FERROUS SULFATE TAB [Concomitant]
     Dosage: 300 MG, QD
  6. ZOFRAN [Concomitant]
     Dosage: 4 MG, TID
  7. VALCYTE [Concomitant]
     Dosage: 450 MG, UNK
  8. VORICONAZOLE [Concomitant]
     Dosage: 200 MG, BID
  9. LOVENOX [Concomitant]
     Dosage: 90 MG, UNK
  10. XOPENEX [Concomitant]
  11. LOPRESSOR [Concomitant]
     Dosage: 12.5 DF, UNK
  12. WARFARIN [Concomitant]
     Dosage: 1 MG, QD
  13. HALDOL [Concomitant]
     Dosage: 0.25 MG, UNK
  14. PREDNISONE [Concomitant]
     Dosage: 5 MG, UNK

REACTIONS (4)
  - PULMONARY FIBROSIS [None]
  - PELVIC FRACTURE [None]
  - BLOOD PARATHYROID HORMONE INCREASED [None]
  - BONE DENSITY DECREASED [None]
